FAERS Safety Report 9395562 (Version 1)
Quarter: 2013Q3

REPORT INFORMATION
  Report Type: Report from Study
  Country: KR (occurrence: KR)
  Receive Date: 20130711
  Receipt Date: 20130711
  Transmission Date: 20140515
  Serious: Yes (Death, Hospitalization)
  Sender: FDA-Public Use
  Company Number: KR-ASTELLAS-2013US007249

PATIENT
  Age: 69 Year
  Sex: Male

DRUGS (1)
  1. ERLOTINIB TABLET [Suspect]
     Indication: NON-SMALL CELL LUNG CANCER
     Dosage: 150 MG, UID/QD
     Route: 048
     Dates: start: 20130513, end: 20130607

REACTIONS (3)
  - Dyspnoea [Fatal]
  - Interstitial lung disease [Unknown]
  - Pneumonia [Unknown]
